FAERS Safety Report 16795620 (Version 1)
Quarter: 2019Q3

REPORT INFORMATION
  Report Type: Spontaneous
  Country: US (occurrence: US)
  Receive Date: 20190911
  Receipt Date: 20190911
  Transmission Date: 20191005
  Serious: Yes (Other)
  Sender: FDA-Public Use
  Company Number: US-PFIZER INC-2019370706

PATIENT
  Age: 48 Year
  Sex: Male
  Weight: 117 kg

DRUGS (4)
  1. ATROPINE SULFATE. [Suspect]
     Active Substance: ATROPINE SULFATE
     Indication: CARDIAC ARREST
     Dosage: 2 MG, UNK
     Route: 042
  2. SODIUM CHLORIDE. [Concomitant]
     Active Substance: SODIUM CHLORIDE
     Dosage: 20 ML
  3. PHENYLEPHRINE [Suspect]
     Active Substance: PHENYLEPHRINE HYDROCHLORIDE
     Indication: CARDIAC ARREST
     Dosage: 4 MG, UNK
     Route: 042
  4. ISOPROTERENOL HCL [Suspect]
     Active Substance: ISOPROTERENOL HYDROCHLORIDE
     Indication: CARDIAC ARREST
     Dosage: 0.2 MG,
     Route: 042

REACTIONS (1)
  - Ventricular fibrillation [Recovered/Resolved]
